FAERS Safety Report 21645580 (Version 1)
Quarter: 2022Q4

REPORT INFORMATION
  Report Type: Spontaneous
  Country: DK (occurrence: DK)
  Receive Date: 20221126
  Receipt Date: 20221126
  Transmission Date: 20230113
  Serious: Yes (Other)
  Sender: FDA-Public Use
  Company Number: None

PATIENT
  Age: 34 Year
  Sex: Male

DRUGS (2)
  1. HUMIRA [Suspect]
     Active Substance: ADALIMUMAB
     Indication: Psoriasis
     Route: 058
     Dates: start: 201305
  2. IMRALDI [Suspect]
     Active Substance: ADALIMUMAB
     Indication: Psoriasis
     Dosage: STRENGTH: 40 MG
     Route: 065
     Dates: start: 20190129, end: 20201208

REACTIONS (6)
  - Sensory disturbance [Not Recovered/Not Resolved]
  - Pain in extremity [Not Recovered/Not Resolved]
  - Muscle fatigue [Not Recovered/Not Resolved]
  - Multiple sclerosis [Not Recovered/Not Resolved]
  - Hypoaesthesia [Recovered/Resolved]
  - Hypoaesthesia [Unknown]

NARRATIVE: CASE EVENT DATE: 20161220
